FAERS Safety Report 19229708 (Version 1)
Quarter: 2021Q2

REPORT INFORMATION
  Report Type: Spontaneous
  Country: US (occurrence: US)
  Receive Date: 20210506
  Receipt Date: 20210506
  Transmission Date: 20210717
  Serious: No
  Sender: FDA-Public Use
  Company Number: None

PATIENT
  Age: 74 Year
  Sex: Male
  Weight: 87 kg

DRUGS (2)
  1. IODIXANOL. [Suspect]
     Active Substance: IODIXANOL
     Indication: SCAN WITH CONTRAST
     Dates: start: 20210424
  2. IODIXANOL. [Concomitant]
     Active Substance: IODIXANOL
     Dates: start: 20210424, end: 20210424

REACTIONS (2)
  - Contrast media reaction [None]
  - Hypersensitivity [None]

NARRATIVE: CASE EVENT DATE: 20210424
